FAERS Safety Report 6340023-9 (Version None)
Quarter: 2009Q3

REPORT INFORMATION
  Report Type: 
  Country: None (occurrence: None)
  Receive Date: 20090903
  Receipt Date: 20090819
  Transmission Date: 20100115
  Serious: Yes (Hospitalization)
  Sender: FDA-Public Use
  Company Number: US-PFIZER INC-2009259339

PATIENT
  Sex: Female

DRUGS (2)
  1. PREGABALIN [Suspect]
     Indication: PARAESTHESIA
     Dosage: 75 MG, UNK
  2. FENTANYL TRANSDERMAL SYSTEM [Concomitant]

REACTIONS (1)
  - WITHDRAWAL SYNDROME [None]
